FAERS Safety Report 5960734-4 (Version None)
Quarter: 2008Q4

REPORT INFORMATION
  Report Type: 
  Country: None (occurrence: None)
  Receive Date: 20081120
  Receipt Date: 20081111
  Transmission Date: 20090506
  Serious: Yes (Other)
  Sender: FDA-Public Use
  Company Number: US-PFIZER INC-2008080631

PATIENT
  Sex: Female
  Weight: 70.3 kg

DRUGS (13)
  1. CHANTIX [Suspect]
     Indication: SMOKING CESSATION THERAPY
     Route: 048
     Dates: start: 20080723
  2. XANAX [Concomitant]
     Indication: ANXIETY
  3. ZOLOFT [Concomitant]
     Indication: DEPRESSION
     Dates: start: 20010101
  4. INSULIN [Concomitant]
  5. METFORMIN HCL [Concomitant]
     Indication: DIABETES MELLITUS
  6. REMERON [Concomitant]
     Indication: DEPRESSION
  7. ACCUPRIL [Concomitant]
     Indication: HYPERTENSION
  8. ZOCOR [Concomitant]
     Indication: BLOOD CHOLESTEROL INCREASED
  9. PREVACID [Concomitant]
     Indication: GASTROOESOPHAGEAL REFLUX DISEASE
  10. VALIUM [Concomitant]
  11. LEXAPRO [Concomitant]
  12. AMBIEN [Concomitant]
  13. ALLEGRA [Concomitant]

REACTIONS (3)
  - AGITATION [None]
  - PANCREATIC INSUFFICIENCY [None]
  - PHYSICAL ASSAULT [None]
